FAERS Safety Report 9137456 (Version 4)
Quarter: 2013Q2

REPORT INFORMATION
  Report Type: Spontaneous
  Country: JP (occurrence: JP)
  Receive Date: 20130304
  Receipt Date: 20130423
  Transmission Date: 20140414
  Serious: Yes (Death)
  Sender: FDA-Public Use
  Company Number: JP-CELGENEUS-087-21880-13023901

PATIENT
  Age: 74 Year
  Sex: Male

DRUGS (15)
  1. REVLIMID [Suspect]
     Indication: PLASMA CELL MYELOMA
     Dosage: 5 MILLIGRAM
     Route: 048
     Dates: start: 20121225, end: 20130105
  2. REVLIMID [Suspect]
     Dosage: 5 MILLIGRAM
     Route: 048
     Dates: start: 20130122, end: 20130126
  3. LENADEX [Suspect]
     Indication: PLASMA CELL MYELOMA
     Dosage: 8 MILLIGRAM
     Route: 048
     Dates: start: 20121225, end: 20130101
  4. LENADEX [Suspect]
     Dosage: 8 MILLIGRAM
     Route: 048
     Dates: start: 20130122, end: 20130122
  5. MYSLEE [Concomitant]
     Indication: INSOMNIA
     Dosage: 1 TABLET
     Route: 048
     Dates: end: 20130226
  6. BAYASPIRIN [Concomitant]
     Indication: THROMBOSIS PROPHYLAXIS
     Dosage: 1 TABLET
     Route: 048
     Dates: start: 20121225, end: 20130226
  7. NAUZELIN [Concomitant]
     Indication: NAUSEA
     Dosage: 9 TABLET
     Route: 048
     Dates: end: 20130226
  8. METHYCOBAL [Concomitant]
     Indication: NEUROPATHY PERIPHERAL
     Dosage: 9 TABLET
     Route: 065
     Dates: end: 20130226
  9. TAKEPRON [Concomitant]
     Indication: PROPHYLAXIS AGAINST GASTROINTESTINAL ULCER
     Dosage: 1 TABLET
     Route: 048
     Dates: end: 20130226
  10. ATELEC [Concomitant]
     Indication: HYPERTENSION
     Dosage: 1 TABLET
     Route: 048
     Dates: end: 20130226
  11. ZOVIRAX [Concomitant]
     Indication: INFECTION PROPHYLAXIS
     Dosage: 1 TABLET
     Route: 048
     Dates: end: 20130129
  12. BAKTAR [Concomitant]
     Indication: INFECTION PROPHYLAXIS
     Dosage: 1 TABLET
     Route: 048
     Dates: end: 20130129
  13. MIYA BM [Concomitant]
     Indication: PROPHYLAXIS
     Dosage: 1 TABLET
     Route: 048
     Dates: end: 20130226
  14. CALCIUM CARBONATE [Concomitant]
     Indication: PRODUCT USED FOR UNKNOWN INDICATION
     Route: 065
  15. DIOVAN [Concomitant]
     Indication: HYPERTENSION
     Dosage: .5 TABLET
     Route: 048
     Dates: start: 20130122

REACTIONS (1)
  - Liver function test abnormal [Fatal]
